FAERS Safety Report 4280654-3 (Version None)
Quarter: 2004Q1

REPORT INFORMATION
  Report Type: 
  Country: None (occurrence: None)
  Receive Date: 20040123
  Receipt Date: 20040119
  Transmission Date: 20041129
  Serious: Yes (Hospitalization)
  Sender: FDA-Public Use
  Company Number: 200410213GDS

PATIENT
  Age: 17 Year
  Sex: Female

DRUGS (7)
  1. CIPROFLOXACIN [Suspect]
     Indication: DIVERTICULITIS
     Dosage: 500 MG, BID, ORAL
     Route: 048
     Dates: start: 20040106
  2. OLANZAPIN [Concomitant]
  3. CLOZAPIN ^NEURAXPHARM^ [Concomitant]
  4. BIPERIDEN HYDROCHLORIDE TAB [Concomitant]
  5. FLUOXETIN ^BIOCHEMIE^ [Concomitant]
  6. ZOLPIDEM TARTRATE [Concomitant]
  7. LACTITOL [Concomitant]

REACTIONS (3)
  - CONSTIPATION [None]
  - TACHYCARDIA [None]
  - TOXIC DILATATION OF COLON [None]
